FAERS Safety Report 4492883-4 (Version None)
Quarter: 2004Q4

REPORT INFORMATION
  Report Type: 
  Country: None (occurrence: None)
  Receive Date: 20041029
  Receipt Date: 20041019
  Transmission Date: 20050328
  Serious: Yes (Life-Threatening, Hospitalization)
  Sender: FDA-Public Use
  Company Number: 2003156715JP

PATIENT
  Age: 80 Year
  Sex: Male
  Weight: 65 kg

DRUGS (9)
  1. CABERGOLINE [Suspect]
     Indication: PARKINSON'S DISEASE
     Dosage: 0.25 MG, QD, ORAL; 0.5 MG, QD, ORAL; 1 MG, QD, ORAL; 2 MG, QD, ORAL
     Route: 048
     Dates: start: 20020526, end: 20020604
  2. CABERGOLINE [Suspect]
     Indication: PARKINSON'S DISEASE
     Dosage: 0.25 MG, QD, ORAL; 0.5 MG, QD, ORAL; 1 MG, QD, ORAL; 2 MG, QD, ORAL
     Route: 048
     Dates: start: 20020605, end: 20020630
  3. CABERGOLINE [Suspect]
     Indication: PARKINSON'S DISEASE
     Dosage: 0.25 MG, QD, ORAL; 0.5 MG, QD, ORAL; 1 MG, QD, ORAL; 2 MG, QD, ORAL
     Route: 048
     Dates: start: 20020701, end: 20020730
  4. CABERGOLINE [Suspect]
     Indication: PARKINSON'S DISEASE
     Dosage: 0.25 MG, QD, ORAL; 0.5 MG, QD, ORAL; 1 MG, QD, ORAL; 2 MG, QD, ORAL
     Route: 048
     Dates: start: 20020731, end: 20020821
  5. MADOPAR (BENSERAZIDE HYDROCHLORIDE) [Concomitant]
  6. EUGLUCON (GLIBENCLAMIDE) [Concomitant]
  7. BASEN (VOGLIBOSE) [Concomitant]
  8. BUFORMIN HYDROCHLORIDE (BUFORMIN HYDROCHLORIDE) [Concomitant]
  9. BUFFERIN [Concomitant]

REACTIONS (5)
  - CARDIAC FAILURE [None]
  - CEREBRAL INFARCTION [None]
  - DEPRESSED LEVEL OF CONSCIOUSNESS [None]
  - PLEURAL EFFUSION [None]
  - PNEUMONIA ASPIRATION [None]
